FAERS Safety Report 11270126 (Version 3)
Quarter: 2015Q4

REPORT INFORMATION
  Report Type: Spontaneous
  Country: US (occurrence: US)
  Receive Date: 20150714
  Receipt Date: 20151124
  Transmission Date: 20160304
  Serious: Yes (Hospitalization, Other)
  Sender: FDA-Public Use
  Company Number: US-PFIZER INC-2015231223

PATIENT
  Age: 86 Year
  Sex: Female
  Weight: 54 kg

DRUGS (16)
  1. STARLIX [Concomitant]
     Active Substance: NATEGLINIDE
     Indication: TYPE 2 DIABETES MELLITUS
     Dosage: ONE PILL BEFORE MEAL
     Route: 048
  2. KLONOPIN [Concomitant]
     Active Substance: CLONAZEPAM
     Indication: NERVOUSNESS
     Dosage: 0.25-0 5MG, DAILY AS NEEDED
     Route: 048
  3. METHIMAZOLE. [Concomitant]
     Active Substance: METHIMAZOLE
     Dosage: 5 MG, DAILY (5 MG BY MOUTH DAILY AT NOON)
     Route: 048
  4. CLARITIN [Concomitant]
     Active Substance: LORATADINE
     Indication: SEASONAL ALLERGY
     Dosage: 10 MG (1 DF), 1X/DAY, SKIP TAKING THEM IF SHE IS HAVING A GOOD DAY
     Route: 048
  5. METOPROLOL TARTRATE. [Concomitant]
     Active Substance: METOPROLOL TARTRATE
     Indication: HYPERTENSION
     Dosage: 50 MG, 2X/DAY
     Route: 048
  6. ALDACTONE [Suspect]
     Active Substance: SPIRONOLACTONE
     Indication: HYPERTENSION
     Dosage: 25 MG, 1X/DAY EVERY MORNING
     Route: 048
  7. STARLIX [Concomitant]
     Active Substance: NATEGLINIDE
     Dosage: 60 MG, 3X/DAY BEFORE MEALS
     Route: 048
  8. AZOPT [Concomitant]
     Active Substance: BRINZOLAMIDE
     Indication: GLAUCOMA
     Dosage: 1GTT, 2X/DAY (1 DROP TO EYE)
     Route: 047
  9. PRAVACHOL [Concomitant]
     Active Substance: PRAVASTATIN SODIUM
     Indication: BLOOD CHOLESTEROL
     Dosage: 20 MG, 1X/DAY NIGHTLY
     Route: 048
  10. FLONASE [Concomitant]
     Active Substance: FLUTICASONE PROPIONATE
     Dosage: 50 ?G, UNK (50MCG/ACTUATION)
     Route: 045
  11. TAPAZOLE [Concomitant]
     Active Substance: METHIMAZOLE
     Indication: HYPERTHYROIDISM
     Dosage: 5 MG, 1X/DAY AT NOON
     Route: 048
  12. KLONOPIN [Concomitant]
     Active Substance: CLONAZEPAM
     Dosage: 0.5 MG, UNK
     Route: 048
  13. FLONASE [Concomitant]
     Active Substance: FLUTICASONE PROPIONATE
     Dosage: 2 SPRAYS IN BOTH NOSTRILS, DAILY
     Route: 045
  14. REVATIO [Suspect]
     Active Substance: SILDENAFIL CITRATE
     Dosage: 20 MG, 3X/DAY
     Route: 048
     Dates: start: 201304
  15. METHIMAZOLE. [Concomitant]
     Active Substance: METHIMAZOLE
     Indication: HYPERTHYROIDISM
     Dosage: 10 MG, UNK
     Route: 048
  16. LUMIGAN [Concomitant]
     Active Substance: BIMATOPROST
     Indication: GLAUCOMA
     Dosage: 1 GTT, BOTH EYES 1X/DAY NIGHTLY
     Route: 047

REACTIONS (4)
  - Asthenia [Recovered/Resolved]
  - Herpes zoster [Recovered/Resolved]
  - Dyspnoea [Unknown]
  - Nervousness [Recovered/Resolved]

NARRATIVE: CASE EVENT DATE: 201311
